FAERS Safety Report 10048062 (Version 1)
Quarter: 2014Q1

REPORT INFORMATION
  Report Type: Spontaneous
  Country: US (occurrence: None)
  Receive Date: 20140327
  Receipt Date: 20140327
  Transmission Date: 20141002
  Serious: Yes (Other)
  Sender: FDA-Public Use
  Company Number: US-015105

PATIENT
  Age: 9 Year
  Sex: Male

DRUGS (3)
  1. DDAVP [Suspect]
     Indication: EPISTAXIS
  2. DDAVP [Suspect]
     Indication: EPISTAXIS
  3. STIMATE [Suspect]
     Indication: EPISTAXIS

REACTIONS (6)
  - Platelet dysfunction [None]
  - Haemorrhage [None]
  - Epistaxis [None]
  - No therapeutic response [None]
  - Condition aggravated [None]
  - Product quality issue [None]
